FAERS Safety Report 15534456 (Version 3)
Quarter: 2019Q1

REPORT INFORMATION
  Report Type: Report from Study
  Country: JP (occurrence: JP)
  Receive Date: 20181022
  Receipt Date: 20190128
  Transmission Date: 20190417
  Serious: Yes (Other)
  Sender: FDA-Public Use
  Company Number: JP-BEH-2018093392

PATIENT
  Age: 70 Year
  Sex: Male
  Weight: 52 kg

DRUGS (29)
  1. BISOPROLOL [Concomitant]
     Active Substance: BISOPROLOL
     Route: 048
  2. LANSOPRAZOLE. [Concomitant]
     Active Substance: LANSOPRAZOLE
     Indication: STRESS ULCER
     Dosage: UNK
     Route: 048
     Dates: start: 20180524, end: 20180615
  3. ASPIRIN. [Concomitant]
     Active Substance: ASPIRIN
     Route: 048
  4. ZOSYN [Suspect]
     Active Substance: PIPERACILLIN SODIUM\TAZOBACTAM SODIUM
     Indication: PNEUMONIA ASPIRATION
     Dosage: UNK
     Route: 065
     Dates: start: 201805, end: 20180528
  5. DIPRIVAN [Concomitant]
     Active Substance: PROPOFOL
     Indication: SURGERY
     Dosage: UNK
     Route: 065
     Dates: start: 20180522, end: 20180522
  6. ATORVASTATIN [Concomitant]
     Active Substance: ATORVASTATIN
     Route: 048
  7. VANCOMYCIN [Concomitant]
     Active Substance: VANCOMYCIN
     Indication: PSEUDOMEMBRANOUS COLITIS
     Dosage: UNK
     Route: 048
     Dates: start: 20180528, end: 20180607
  8. ENALAPRIL [Concomitant]
     Active Substance: ENALAPRIL
     Route: 048
  9. CEFAZOLIN [Suspect]
     Active Substance: CEFAZOLIN
     Indication: INFECTION PROPHYLAXIS
     Dosage: UNK
     Route: 065
     Dates: start: 20180522, end: 20180524
  10. MANNITOL. [Concomitant]
     Active Substance: MANNITOL
     Indication: INTRACRANIAL PRESSURE INCREASED
     Dosage: UNK
     Route: 065
     Dates: start: 20180522, end: 20180529
  11. SULBACILLIN [Suspect]
     Active Substance: AMPICILLIN SODIUM\SULBACTAM SODIUM
     Indication: PNEUMONIA ASPIRATION
     Dosage: UNK
     Route: 065
     Dates: start: 201805, end: 20180531
  12. FYCOMPA [Concomitant]
     Active Substance: PERAMPANEL
     Indication: EPILEPSY
     Dosage: UNK
     Route: 048
     Dates: start: 20180524, end: 20180614
  13. E KEPPRA [Concomitant]
     Active Substance: LEVETIRACETAM
     Indication: EPILEPSY
     Dosage: UNK
     Route: 048
     Dates: start: 20180525
  14. REMIFENTANIL [Concomitant]
     Active Substance: REMIFENTANIL
     Indication: SURGERY
     Dosage: UNK
     Route: 065
     Dates: start: 20180522, end: 20180522
  15. BERIPLEX P/N [Suspect]
     Active Substance: COAGULATION FACTOR IX HUMAN\COAGULATION FACTOR VII HUMAN\COAGULATION FACTOR X HUMAN\PROTEIN C\PROTEIN S HUMAN\PROTHROMBIN
     Indication: HAEMORRHAGE
     Dosage: 2500 IU/50 IUPER KG, TOT
     Route: 042
     Dates: start: 20180522
  16. BERIPLEX P/N [Suspect]
     Active Substance: COAGULATION FACTOR IX HUMAN\COAGULATION FACTOR VII HUMAN\COAGULATION FACTOR X HUMAN\PROTEIN C\PROTEIN S HUMAN\PROTHROMBIN
     Dosage: UNK
     Route: 042
  17. ROCURONIUM [Concomitant]
     Active Substance: ROCURONIUM BROMIDE
     Indication: SURGERY
     Dosage: UNK
     Route: 065
     Dates: start: 20180522, end: 20180522
  18. HERBESSER [Concomitant]
     Active Substance: DILTIAZEM HYDROCHLORIDE
     Indication: SURGERY
     Dosage: UNK
     Route: 065
     Dates: start: 20180522, end: 20180522
  19. E KEPPRA [Concomitant]
     Active Substance: LEVETIRACETAM
     Indication: EPILEPSY
     Dosage: UNK
     Route: 065
     Dates: start: 20180523, end: 20180524
  20. AMLODIPINE [Concomitant]
     Active Substance: AMLODIPINE BESYLATE
     Dosage: UNK
     Route: 048
     Dates: start: 20180528
  21. PLAVIX [Concomitant]
     Active Substance: CLOPIDOGREL BISULFATE
     Route: 048
  22. BERIPLEX P/N [Suspect]
     Active Substance: COAGULATION FACTOR IX HUMAN\COAGULATION FACTOR VII HUMAN\COAGULATION FACTOR X HUMAN\PROTEIN C\PROTEIN S HUMAN\PROTHROMBIN
     Indication: SURGERY
     Dosage: UNK
     Route: 042
  23. NEOSYNESIN                         /00116302/ [Concomitant]
     Indication: SURGERY
     Dosage: UNK
     Route: 065
     Dates: start: 20180522, end: 20180522
  24. HUMULIN NOS [Concomitant]
     Active Substance: INSULIN HUMAN
     Dosage: UNK
     Route: 065
     Dates: start: 20180522, end: 20180604
  25. NICARDIPINE [Concomitant]
     Active Substance: NICARDIPINE
     Indication: BLOOD PRESSURE MANAGEMENT
     Dosage: UNK
     Route: 065
     Dates: start: 20180522, end: 20180601
  26. LANSOPRAZOLE. [Concomitant]
     Active Substance: LANSOPRAZOLE
     Indication: PROPHYLAXIS
  27. LIXIANA [Concomitant]
     Active Substance: EDOXABAN TOSYLATE
     Dosage: UNK
     Route: 065
     Dates: start: 20180522
  28. FENTANYL. [Concomitant]
     Active Substance: FENTANYL
     Indication: SURGERY
     Dosage: UNK
     Route: 065
     Dates: start: 20180522, end: 20180522
  29. E KEPPRA [Concomitant]
     Active Substance: LEVETIRACETAM
     Dosage: UNK
     Route: 048
     Dates: start: 20180525

REACTIONS (2)
  - Pseudomembranous colitis [Recovered/Resolved]
  - Diarrhoea [Recovered/Resolved]

NARRATIVE: CASE EVENT DATE: 20180528
